FAERS Safety Report 5136012-2 (Version None)
Quarter: 2006Q4

REPORT INFORMATION
  Report Type: 
  Country: None (occurrence: None)
  Receive Date: 20061020
  Receipt Date: 20061010
  Transmission Date: 20070319
  Serious: Yes (Hospitalization, Other)
  Sender: FDA-Public Use
  Company Number: 2006099022

PATIENT
  Age: 17 Year
  Sex: Female
  Weight: 55 kg

DRUGS (1)
  1. DEPO-PROVERA [Suspect]
     Indication: CONTRACEPTION
     Dosage: SINGLE INJECTION, INTRAMUSCULAR
     Route: 030
     Dates: start: 20060119, end: 20060119

REACTIONS (8)
  - ABORTION INDUCED [None]
  - CULTURE WOUND POSITIVE [None]
  - CYSTITIS [None]
  - EMOTIONAL DISTRESS [None]
  - NEPHRITIS [None]
  - STAPHYLOCOCCAL INFECTION [None]
  - SUBCUTANEOUS ABSCESS [None]
  - UNINTENDED PREGNANCY [None]
